FAERS Safety Report 13302284 (Version 2)
Quarter: 2017Q1

REPORT INFORMATION
  Report Type: Spontaneous
  Country: US (occurrence: US)
  Receive Date: 20170307
  Receipt Date: 20170314
  Transmission Date: 20170428
  Serious: No
  Sender: FDA-Public Use
  Company Number: US-HORIZON-DUE-0052-2017

PATIENT
  Age: 52 Year
  Sex: Male

DRUGS (1)
  1. DUEXIS [Suspect]
     Active Substance: FAMOTIDINE\IBUPROFEN
     Indication: OSTEOARTHRITIS
     Dosage: TID

REACTIONS (1)
  - Pain [Unknown]
